FAERS Safety Report 14320881 (Version 1)
Quarter: 2017Q4

REPORT INFORMATION
  Report Type: Spontaneous
  Country: US (occurrence: US)
  Receive Date: 20171223
  Receipt Date: 20171223
  Transmission Date: 20180321
  Serious: No
  Sender: FDA-Public Use
  Company Number: US-ASTRAZENECA-2017SF26337

PATIENT
  Sex: Female

DRUGS (4)
  1. MEPOLIZUMAB [Concomitant]
     Active Substance: MEPOLIZUMAB
  2. XOLAIR [Concomitant]
     Active Substance: OMALIZUMAB
  3. FASENRA [Suspect]
     Active Substance: BENRALIZUMAB
     Indication: ASTHMA
     Route: 058
  4. FASENRA [Suspect]
     Active Substance: BENRALIZUMAB
     Indication: ASTHMA
     Dosage: FIRST 3 DOSES
     Route: 058
     Dates: start: 20171201

REACTIONS (2)
  - Headache [Unknown]
  - Muscular weakness [Unknown]
